FAERS Safety Report 9592479 (Version 1)
Quarter: 2013Q3

REPORT INFORMATION
  Report Type: Spontaneous
  Country: US (occurrence: None)
  Receive Date: 20130927
  Receipt Date: 20130927
  Transmission Date: 20140515
  Serious: No
  Sender: FDA-Public Use
  Company Number: CABO-13003222

PATIENT
  Age: 62 Year
  Sex: Male

DRUGS (12)
  1. COMETRIQ [Suspect]
     Indication: THYROID CANCER
     Route: 048
     Dates: start: 201303, end: 201307
  2. CARAFATE (SYCRALFATE) [Concomitant]
  3. CLONAZEPAM (CLONAZEPAM) (CLONAZEPAM) [Concomitant]
  4. VICODIN (HYDROCODONE BITARTRATE, PARACETAMOL) [Concomitant]
  5. GLIPIZIDE (GLIPIZIDE) [Concomitant]
  6. METFORMIN (METFORMIN) [Concomitant]
  7. LEVOTHYROXINE (LEVOTHYROXINE) [Concomitant]
  8. NORFLEX (ORPHENADRINE CITRATE) [Concomitant]
  9. NORVASC (AMLODIPINE BESILATE) [Concomitant]
  10. PLAVIX (CLOPIDOGREL BISULFATE) [Concomitant]
  11. RAMIPRIL (RAMIPRIL) [Concomitant]
  12. ZANTAC (RANITIDINE HYDROCHLORIDE) [Concomitant]

REACTIONS (7)
  - Depression [None]
  - Asthenia [None]
  - Decreased appetite [None]
  - Diarrhoea [None]
  - Fatigue [None]
  - Nausea [None]
  - Dysgeusia [None]
